FAERS Safety Report 23429132 (Version 2)
Quarter: 2024Q1

REPORT INFORMATION
  Report Type: Report from Study
  Country: US (occurrence: US)
  Receive Date: 20240122
  Receipt Date: 20240130
  Transmission Date: 20240409
  Serious: No
  Sender: FDA-Public Use
  Company Number: US-SA-SAC20240117000232

PATIENT
  Sex: Female
  Weight: 65.77 kg

DRUGS (8)
  1. DUPIXENT [Suspect]
     Active Substance: DUPILUMAB
     Indication: Illness
     Dosage: 300 MG, QOW
     Route: 058
     Dates: start: 20170201
  2. DUPIXENT [Suspect]
     Active Substance: DUPILUMAB
     Indication: Dermatitis atopic
     Dosage: 300 MG, QOW
     Route: 058
     Dates: start: 2019
  3. DUPIXENT [Suspect]
     Active Substance: DUPILUMAB
     Dosage: 300 MG, Q3W
     Route: 058
     Dates: end: 2023
  4. AIREX [Concomitant]
     Dosage: UNK
  5. ESTROGENS\METHYLTESTOSTERONE [Concomitant]
     Active Substance: ESTROGENS\METHYLTESTOSTERONE
     Dosage: UNK
  6. PROGESTERONE [Concomitant]
     Active Substance: PROGESTERONE
     Dosage: UNK
  7. AMLODIPINE BESYLATE [Concomitant]
     Active Substance: AMLODIPINE BESYLATE
     Dosage: UNK
  8. VYVANSE [Concomitant]
     Active Substance: LISDEXAMFETAMINE DIMESYLATE
     Dosage: UNK

REACTIONS (2)
  - Condition aggravated [Not Recovered/Not Resolved]
  - Intentional product misuse [Unknown]
